FAERS Safety Report 18949147 (Version 1)
Quarter: 2021Q1

REPORT INFORMATION
  Report Type: Spontaneous
  Country: US (occurrence: US)
  Receive Date: 20210227
  Receipt Date: 20210227
  Transmission Date: 20210420
  Serious: No
  Sender: FDA-Public Use
  Company Number: US-ROCHE-2638815

PATIENT
  Sex: Male
  Weight: 67.19 kg

DRUGS (6)
  1. ASPIRIN. [Concomitant]
     Active Substance: ASPIRIN
  2. NEPHRO?VITE (UNITED STATES) [Concomitant]
  3. XOLAIR [Suspect]
     Active Substance: OMALIZUMAB
     Indication: CHRONIC SPONTANEOUS URTICARIA
     Dosage: 2 VIALS OF 150 MG
     Route: 058
     Dates: start: 201809, end: 20200611
  4. FOLIC ACID. [Concomitant]
     Active Substance: FOLIC ACID
  5. BRILINTA [Concomitant]
     Active Substance: TICAGRELOR
  6. CARVEDILOL. [Concomitant]
     Active Substance: CARVEDILOL

REACTIONS (1)
  - Pruritus [Unknown]
